FAERS Safety Report 14471417 (Version 2)
Quarter: 2018Q1

REPORT INFORMATION
  Report Type: Spontaneous
  Country: DK (occurrence: DK)
  Receive Date: 20180131
  Receipt Date: 20180306
  Transmission Date: 20180509
  Serious: Yes (Other)
  Sender: FDA-Public Use
  Company Number: PHHY2017DK200017

PATIENT
  Sex: Female

DRUGS (6)
  1. CALCIUM FOLINATE [Concomitant]
     Active Substance: LEUCOVORIN CALCIUM
     Indication: PRODUCT USED FOR UNKNOWN INDICATION
     Dosage: 4 ML, UNK
     Route: 065
  2. DACTINOMYCIN [Concomitant]
     Active Substance: DACTINOMYCIN
     Indication: PRODUCT USED FOR UNKNOWN INDICATION
     Dosage: 0.5 MG, FOR 5 DAYS  (SCHEDULE REPEATED EVERY 4 WEEKS (ALTERNATIVELY EVERY 3 WEEKS).
     Route: 042
  3. CISPLATIN. [Suspect]
     Active Substance: CISPLATIN
     Indication: GESTATIONAL TROPHOBLASTIC TUMOUR
     Dosage: 20 MG/M2, ON DAYS 1-5, REPEATED EVERY 3 WEEKS
     Route: 042
  4. ETOPOSIDE. [Suspect]
     Active Substance: ETOPOSIDE
     Indication: GESTATIONAL TROPHOBLASTIC TUMOUR
     Dosage: 100 MG/M2, ON DAYS 1-5, REPEATED EVERY 3 WEEKS
     Route: 042
  5. BLEOMYCIN [Suspect]
     Active Substance: BLEOMYCIN SULFATE
     Indication: GESTATIONAL TROPHOBLASTIC TUMOUR
     Dosage: 30000 IU, ADMINISTERED ON DAYS 2,9 AND 16 IN EVERY 3 WEEKS CYCLE
     Route: 042
  6. METHOTREXATE. [Suspect]
     Active Substance: METHOTREXATE
     Indication: GESTATIONAL TROPHOBLASTIC TUMOUR
     Dosage: 10 MG, REPEATED EVERY 4 WEEKS
     Route: 048

REACTIONS (4)
  - Respiratory symptom [Unknown]
  - Drug resistance [Unknown]
  - Product use in unapproved indication [Unknown]
  - Anaemia [Unknown]
